FAERS Safety Report 21228816 (Version 1)
Quarter: 2022Q3

REPORT INFORMATION
  Report Type: Spontaneous
  Country: CN (occurrence: None)
  Receive Date: 20220818
  Receipt Date: 20220818
  Transmission Date: 20221027
  Serious: Yes (Other)
  Sender: FDA-Public Use
  Company Number: CN-ROCHE-3160239

PATIENT
  Age: 53 Year
  Sex: Male
  Weight: 55 kg

DRUGS (3)
  1. GAZYVA [Suspect]
     Active Substance: OBINUTUZUMAB
     Indication: Follicular lymphoma
     Route: 042
     Dates: start: 20220712, end: 20220713
  2. DIPHENHYDRAMINE HYDROCHLORIDE [Concomitant]
     Active Substance: DIPHENHYDRAMINE HYDROCHLORIDE
     Route: 030
     Dates: start: 20220712
  3. DEXAMETHASONE SODIUM PHOSPHATE [Concomitant]
     Active Substance: DEXAMETHASONE SODIUM PHOSPHATE
     Dates: start: 20220712

REACTIONS (6)
  - Asthenia [Recovered/Resolved]
  - Chest discomfort [Recovered/Resolved]
  - Asphyxia [Recovered/Resolved]
  - Nausea [Recovered/Resolved]
  - Vomiting [Recovered/Resolved]
  - Hypotension [Recovered/Resolved]

NARRATIVE: CASE EVENT DATE: 20220712
